FAERS Safety Report 17215966 (Version 1)
Quarter: 2019Q4

REPORT INFORMATION
  Report Type: Spontaneous
  Country: NL (occurrence: NL)
  Receive Date: 20191230
  Receipt Date: 20191230
  Transmission Date: 20200122
  Serious: Yes (Other)
  Sender: FDA-Public Use
  Company Number: NL-MYLANLABS-2019M1129269

PATIENT
  Age: 40 Year
  Sex: Male

DRUGS (1)
  1. EVEROLIMUS. [Suspect]
     Active Substance: EVEROLIMUS
     Indication: HUERTHLE CELL CARCINOMA
     Dosage: UNK
     Route: 065

REACTIONS (6)
  - Acne [Unknown]
  - Malignant neoplasm progression [Unknown]
  - Rash [Unknown]
  - Fatigue [Unknown]
  - Mucosal inflammation [Unknown]
  - Huerthle cell carcinoma [Unknown]
